FAERS Safety Report 18215807 (Version 25)
Quarter: 2023Q4

REPORT INFORMATION
  Report Type: Other
  Country: CA (occurrence: None)
  Receive Date: 20200831
  Receipt Date: 20231130
  Transmission Date: 20240110
  Serious: Yes (Hospitalization, Other)
  Sender: FDA-Public Use
  Company Number: CA-ROCHE-2667391

PATIENT
  Age: 40 Year
  Sex: Female

DRUGS (3)
  1. OCREVUS [Suspect]
     Active Substance: OCRELIZUMAB
     Indication: Relapsing-remitting multiple sclerosis
     Dosage: 300 MG AT DAY 0 AND 14  THEN 600 MG Q6M
     Route: 042
     Dates: start: 20200228
  2. OCREVUS [Suspect]
     Active Substance: OCRELIZUMAB
     Dosage: DAY 0, 14 THEN 600 MG Q6M
     Route: 042
  3. OCREVUS [Suspect]
     Active Substance: OCRELIZUMAB
     Route: 042
     Dates: start: 20200305

REACTIONS (30)
  - Urinary tract infection [Recovered/Resolved]
  - Cardiac flutter [Not Recovered/Not Resolved]
  - Optic neuritis [Not Recovered/Not Resolved]
  - Fungal infection [Recovered/Resolved]
  - Cough [Not Recovered/Not Resolved]
  - Nausea [Not Recovered/Not Resolved]
  - Blood urine present [Not Recovered/Not Resolved]
  - Urinary tract infection [Not Recovered/Not Resolved]
  - Hepatic mass [Not Recovered/Not Resolved]
  - Infusion related reaction [Recovered/Resolved]
  - Scratch [Unknown]
  - Wheezing [Recovered/Resolved]
  - Throat irritation [Unknown]
  - Pharyngeal disorder [Unknown]
  - Hyperhidrosis [Not Recovered/Not Resolved]
  - Headache [Not Recovered/Not Resolved]
  - Vomiting [Recovered/Resolved with Sequelae]
  - Oropharyngeal pain [Not Recovered/Not Resolved]
  - Pharyngitis streptococcal [Not Recovered/Not Resolved]
  - Pyrexia [Not Recovered/Not Resolved]
  - Aphonia [Unknown]
  - SARS-CoV-2 test positive [Unknown]
  - Rash [Recovering/Resolving]
  - Drug intolerance [Not Recovered/Not Resolved]
  - Allergy to synthetic fabric [Unknown]
  - Blister [Recovered/Resolved with Sequelae]
  - Pruritus genital [Unknown]
  - Infusion related reaction [Recovering/Resolving]
  - Pain in extremity [Not Recovered/Not Resolved]
  - Arthralgia [Unknown]

NARRATIVE: CASE EVENT DATE: 20220314
